FAERS Safety Report 15475073 (Version 2)
Quarter: 2018Q4

REPORT INFORMATION
  Report Type: Report from Study
  Country: US (occurrence: US)
  Receive Date: 20181008
  Receipt Date: 20181106
  Transmission Date: 20190205
  Serious: Yes (Death)
  Sender: FDA-Public Use
  Company Number: US-EXELIXIS-CABO-18016189

PATIENT
  Age: 43 Year
  Sex: Male

DRUGS (16)
  1. BETAMETHASONE DIPROPIONATE. [Concomitant]
     Active Substance: BETAMETHASONE DIPROPIONATE
  2. METOCLOPRAMIDE. [Concomitant]
     Active Substance: METOCLOPRAMIDE
  3. FAMOTIDINE. [Concomitant]
     Active Substance: FAMOTIDINE
  4. GABAPENTIN. [Concomitant]
     Active Substance: GABAPENTIN
  5. LORAZEPAM. [Concomitant]
     Active Substance: LORAZEPAM
  6. NAPROXEN. [Concomitant]
     Active Substance: NAPROXEN
  7. THERAPEUTIC MULTIVITAMINS [Concomitant]
  8. COMETRIQ [Suspect]
     Active Substance: CABOZANTINIB S-MALATE
     Indication: THYROID CANCER
     Dosage: 60 MG, QD
     Route: 048
     Dates: start: 20180906
  9. CALTRATE 600+D [Concomitant]
  10. LACTULOSE. [Concomitant]
     Active Substance: LACTULOSE
  11. LISINOPRIL. [Concomitant]
     Active Substance: LISINOPRIL
  12. MUPIROCIN. [Concomitant]
     Active Substance: MUPIROCIN
  13. LEVOTHYROXINE. [Concomitant]
     Active Substance: LEVOTHYROXINE
  14. ONDANSETRON [Concomitant]
     Active Substance: ONDANSETRON
  15. TYLENOL [Concomitant]
     Active Substance: ACETAMINOPHEN
  16. OXYCODONE [Concomitant]
     Active Substance: OXYCODONE

REACTIONS (3)
  - Respiratory arrest [Fatal]
  - Pleural effusion [Fatal]
  - Malignant neoplasm progression [Fatal]

NARRATIVE: CASE EVENT DATE: 201809
